FAERS Safety Report 10077032 (Version 1)
Quarter: 2014Q2

REPORT INFORMATION
  Report Type: Spontaneous
  Country: FR (occurrence: FR)
  Receive Date: 20140414
  Receipt Date: 20140414
  Transmission Date: 20141212
  Serious: Yes (Hospitalization)
  Sender: FDA-Public Use
  Company Number: FR-JNJFOC-20140407263

PATIENT
  Age: 57 Year
  Sex: Female

DRUGS (15)
  1. OLANZAPINE [Suspect]
     Indication: PRODUCT USED FOR UNKNOWN INDICATION
     Route: 048
     Dates: start: 20131107, end: 20140213
  2. ACTONEL [Suspect]
     Indication: OSTEOPOROSIS
     Route: 048
     Dates: end: 20140213
  3. COVERAM [Suspect]
     Indication: HYPERTENSION
     Route: 048
     Dates: end: 20140210
  4. DITROPAN [Suspect]
     Indication: URINARY INCONTINENCE
     Route: 048
     Dates: end: 20140213
  5. EFFERALGAN [Suspect]
     Indication: PAIN
     Route: 048
     Dates: end: 20140213
  6. PANTOPRAZOLE [Suspect]
     Indication: PROPHYLAXIS AGAINST GASTROINTESTINAL ULCER
     Route: 048
     Dates: end: 20140213
  7. SERETIDE [Suspect]
     Indication: CHRONIC OBSTRUCTIVE PULMONARY DISEASE
     Route: 055
     Dates: end: 20140213
  8. SULFARLEM [Suspect]
     Indication: CHRONIC OBSTRUCTIVE PULMONARY DISEASE
     Route: 048
     Dates: end: 20140213
  9. DIFFU K [Suspect]
     Indication: HYPOKALAEMIA
     Route: 048
  10. METOJECT [Suspect]
     Indication: RHEUMATOID ARTHRITIS
     Route: 030
     Dates: start: 20131215, end: 20140213
  11. RISPERDAL [Suspect]
     Indication: MENTAL DISORDER
     Route: 048
     Dates: start: 20131003, end: 20140213
  12. SPECIAFOLDINE [Concomitant]
     Indication: ANAEMIA
     Route: 048
  13. IXPRIM [Suspect]
     Indication: PAIN
     Route: 048
     Dates: end: 20140213
  14. ZINNAT [Suspect]
     Indication: LUNG INFECTION
     Route: 048
     Dates: start: 20140210, end: 20140212
  15. SERTRALINE [Suspect]
     Indication: MENTAL DISORDER
     Route: 048
     Dates: start: 20131107, end: 20140213

REACTIONS (3)
  - Gamma-glutamyltransferase increased [Recovered/Resolved]
  - Transaminases increased [Recovering/Resolving]
  - Hepatitis [Recovering/Resolving]
